FAERS Safety Report 9432519 (Version 1)
Quarter: 2013Q3

REPORT INFORMATION
  Report Type: Report from Study
  Country: US (occurrence: US)
  Receive Date: 20130731
  Receipt Date: 20130731
  Transmission Date: 20140515
  Serious: Yes (Hospitalization)
  Sender: FDA-Public Use
  Company Number: US-SANOFI-AVENTIS-2013SA076277

PATIENT
  Sex: Male

DRUGS (2)
  1. AUBAGIO [Suspect]
     Route: 065
     Dates: end: 20130603
  2. AUBAGIO [Suspect]
     Route: 065
     Dates: start: 20130720

REACTIONS (1)
  - Multiple sclerosis relapse [Unknown]
